FAERS Safety Report 24398640 (Version 1)
Quarter: 2024Q4

REPORT INFORMATION
  Report Type: Spontaneous
  Country: CN (occurrence: CN)
  Receive Date: 20241004
  Receipt Date: 20241004
  Transmission Date: 20250115
  Serious: Yes (Hospitalization)
  Sender: BEIGENE
  Company Number: CN-BEIGENE-BGN-2024-015411

PATIENT

DRUGS (3)
  1. TISLELIZUMAB [Suspect]
     Active Substance: TISLELIZUMAB
     Indication: Nasopharyngeal cancer
     Dosage: 200 MILLIGRAM
     Route: 041
     Dates: start: 20240903
  2. CARBOPLATIN [Suspect]
     Active Substance: CARBOPLATIN
     Indication: Nasopharyngeal cancer
     Dosage: 360 MILLIGRAM
     Route: 041
     Dates: start: 20240903
  3. VINORELBINE TARTRATE [Suspect]
     Active Substance: VINORELBINE TARTRATE
     Indication: Nasopharyngeal cancer
     Dosage: 40 MILLIGRAM
     Route: 041
     Dates: start: 20240903

REACTIONS (3)
  - Myelosuppression [Unknown]
  - Sepsis [Unknown]
  - Diarrhoea [Unknown]

NARRATIVE: CASE EVENT DATE: 20240917
